FAERS Safety Report 22305711 (Version 3)
Quarter: 2023Q2

REPORT INFORMATION
  Report Type: Spontaneous
  Country: AU (occurrence: AU)
  Receive Date: 20230510
  Receipt Date: 20230628
  Transmission Date: 20230722
  Serious: Yes (Death)
  Sender: FDA-Public Use
  Company Number: AU-BIOGEN-2023BI01204059

PATIENT
  Age: 0 Year
  Sex: Female

DRUGS (1)
  1. SPINRAZA [Suspect]
     Active Substance: NUSINERSEN
     Indication: Spinal muscular atrophy
     Route: 050
     Dates: start: 20230419, end: 20230504

REACTIONS (1)
  - Death [Fatal]

NARRATIVE: CASE EVENT DATE: 20230508
